FAERS Safety Report 5619758-9 (Version None)
Quarter: 2008Q1

REPORT INFORMATION
  Report Type: 
  Country: None (occurrence: None)
  Receive Date: 20080208
  Receipt Date: 20080102
  Transmission Date: 20080703
  Serious: No
  Sender: FDA-Public Use
  Company Number: A0699752A

PATIENT
  Age: 36 Year
  Sex: Male
  Weight: 113.6 kg

DRUGS (3)
  1. ALTABAX [Suspect]
     Indication: INFECTION
     Route: 061
     Dates: start: 20071210, end: 20071216
  2. IBUPROFEN [Concomitant]
  3. METFORMIN HCL [Concomitant]

REACTIONS (3)
  - BLISTER [None]
  - DRUG ADMINISTRATION ERROR [None]
  - ERYTHEMA [None]
